FAERS Safety Report 23318636 (Version 1)
Quarter: 2023Q4

REPORT INFORMATION
  Report Type: Spontaneous
  Country: US (occurrence: US)
  Receive Date: 20231220
  Receipt Date: 20231220
  Transmission Date: 20240110
  Serious: No
  Sender: FDA-Public Use
  Company Number: US-BIOGEN-2022BI01176576

PATIENT
  Sex: Female

DRUGS (6)
  1. VUMERITY [Suspect]
     Active Substance: DIROXIMEL FUMARATE
     Indication: Multiple sclerosis
     Route: 050
     Dates: start: 20220713
  2. PRIMIDONE [Concomitant]
     Active Substance: PRIMIDONE
     Route: 050
  3. ROSUVASTATIN CALCIUM [Concomitant]
     Active Substance: ROSUVASTATIN CALCIUM
     Route: 050
  4. LACOSAMIDE [Concomitant]
     Active Substance: LACOSAMIDE
     Route: 050
  5. CLOBAZAM [Concomitant]
     Active Substance: CLOBAZAM
     Route: 050
  6. VITAMIN D3 [Concomitant]
     Active Substance: CHOLECALCIFEROL
     Route: 050

REACTIONS (4)
  - Hypoaesthesia [Unknown]
  - Musculoskeletal disorder [Unknown]
  - Anaemia [Recovered/Resolved]
  - Hyponatraemia [Recovered/Resolved]

NARRATIVE: CASE EVENT DATE: 20220101
